FAERS Safety Report 5839152-5 (Version None)
Quarter: 2008Q3

REPORT INFORMATION
  Report Type: 
  Country: None (occurrence: None)
  Receive Date: 20080808
  Receipt Date: 20080729
  Transmission Date: 20090109
  Serious: Yes (Other)
  Sender: FDA-Public Use
  Company Number: US-PFIZER INC-2008063364

PATIENT
  Sex: Female
  Weight: 125 kg

DRUGS (4)
  1. NAVANE [Suspect]
     Indication: BIPOLAR DISORDER
  2. COUMADIN [Suspect]
  3. COGENTIN [Concomitant]
  4. DEPAKOTE [Concomitant]

REACTIONS (2)
  - BIPOLAR DISORDER [None]
  - CONDITION AGGRAVATED [None]
